FAERS Safety Report 19799086 (Version 1)
Quarter: 2021Q3

REPORT INFORMATION
  Report Type: Spontaneous
  Country: ES (occurrence: ES)
  Receive Date: 20210907
  Receipt Date: 20210907
  Transmission Date: 20211014
  Serious: Yes (Death, Hospitalization)
  Sender: FDA-Public Use
  Company Number: ES-TEVA-2021-ES-1948966

PATIENT
  Age: 76 Year
  Sex: Male

DRUGS (5)
  1. HALOPERIDOL (1693A) [Interacting]
     Active Substance: HALOPERIDOL
     Indication: ACUTE PSYCHOSIS
     Dosage: 30GTT
     Route: 048
     Dates: start: 20210331, end: 20210407
  2. HALOPERIDOL (1693A) [Concomitant]
     Active Substance: HALOPERIDOL
     Indication: ACUTE PSYCHOSIS
     Dosage: 35GTT
     Route: 048
     Dates: start: 20210226, end: 20210331
  3. LITIO CARBONATO (1071CA) [Interacting]
     Active Substance: LITHIUM CARBONATE
     Indication: ACUTE PSYCHOSIS
     Dosage: 200MICROGRAM
     Route: 048
     Dates: start: 20210324, end: 20210407
  4. QUETIAPINA (1136A) [Suspect]
     Active Substance: QUETIAPINE
     Indication: ACUTE PSYCHOSIS
     Dosage: 300MILLIGRAM
     Route: 048
     Dates: start: 20210301, end: 20210407
  5. HALOPERIDOL (1693A) [Concomitant]
     Active Substance: HALOPERIDOL
     Indication: ACUTE PSYCHOSIS

REACTIONS (2)
  - Drug interaction [Unknown]
  - Neuroleptic malignant syndrome [Fatal]

NARRATIVE: CASE EVENT DATE: 20210408
